FAERS Safety Report 4263668-9 (Version None)
Quarter: 2004Q1

REPORT INFORMATION
  Report Type: 
  Country: None (occurrence: None)
  Receive Date: 20040102
  Receipt Date: 20031219
  Transmission Date: 20041129
  Serious: Yes (Hospitalization)
  Sender: FDA-Public Use
  Company Number: 03P-013-0245404-00

PATIENT
  Age: 47 Year
  Sex: Male

DRUGS (1)
  1. DEPAKENE [Suspect]
     Indication: EPILEPSY
     Dates: start: 19830101, end: 20030919

REACTIONS (6)
  - LUPUS PNEUMONITIS [None]
  - LUPUS-LIKE SYNDROME [None]
  - PNEUMONIA [None]
  - PRURITUS [None]
  - SYSTEMIC SCLEROSIS [None]
  - VIRAL INFECTION [None]
